FAERS Safety Report 4830462-7 (Version None)
Quarter: 2005Q4

REPORT INFORMATION
  Report Type: 
  Country: None (occurrence: None)
  Receive Date: 20051117
  Receipt Date: 20050621
  Transmission Date: 20060501
  Serious: Yes (Hospitalization, Disabling)
  Sender: FDA-Public Use
  Company Number: US-ROCHE-408670

PATIENT
  Age: 17 Year
  Sex: Male
  Weight: 52.2 kg

DRUGS (2)
  1. ACCUTANE [Suspect]
     Indication: ACNE
     Route: 048
     Dates: start: 20010409
  2. ACCUTANE [Suspect]
     Route: 048
     Dates: start: 20010505

REACTIONS (25)
  - ALANINE AMINOTRANSFERASE DECREASED [None]
  - ANAEMIA [None]
  - APPENDICITIS [None]
  - ASTHMA EXERCISE INDUCED [None]
  - CHILLS [None]
  - COLON ADENOMA [None]
  - CROHN'S DISEASE [None]
  - DIZZINESS [None]
  - DRUG HYPERSENSITIVITY [None]
  - ENTEROCUTANEOUS FISTULA [None]
  - FATIGUE [None]
  - GASTROINTESTINAL DISORDER [None]
  - HEADACHE [None]
  - HERPES SIMPLEX [None]
  - INFLAMMATORY BOWEL DISEASE [None]
  - INTESTINAL HAEMORRHAGE [None]
  - INTESTINAL OBSTRUCTION [None]
  - IRRITABLE BOWEL SYNDROME [None]
  - MALNUTRITION [None]
  - MULTI-ORGAN DISORDER [None]
  - PLATELET COUNT INCREASED [None]
  - PYREXIA [None]
  - RECTAL HAEMORRHAGE [None]
  - RED BLOOD CELL SEDIMENTATION RATE INCREASED [None]
  - VISION BLURRED [None]
